FAERS Safety Report 17134213 (Version 1)
Quarter: 2019Q4

REPORT INFORMATION
  Report Type: Spontaneous
  Country: GB (occurrence: GB)
  Receive Date: 20191210
  Receipt Date: 20191210
  Transmission Date: 20200122
  Serious: Yes (Other)
  Sender: FDA-Public Use
  Company Number: GB-GILEAD-2019-0440667

PATIENT
  Age: 37 Year
  Sex: Male
  Weight: 70 kg

DRUGS (1)
  1. TRUVADA [Suspect]
     Active Substance: EMTRICITABINE\TENOFOVIR DISOPROXIL FUMARATE
     Indication: PROPHYLAXIS AGAINST HIV INFECTION
     Dosage: 1 DOSAGE FORM, QD
     Route: 048
     Dates: start: 20170718

REACTIONS (5)
  - Discomfort [Not Recovered/Not Resolved]
  - Burning sensation [Not Recovered/Not Resolved]
  - Faecal calprotectin increased [Unknown]
  - Paraesthesia [Not Recovered/Not Resolved]
  - Temperature intolerance [Not Recovered/Not Resolved]

NARRATIVE: CASE EVENT DATE: 20180315
